FAERS Safety Report 17610428 (Version 6)
Quarter: 2023Q1

REPORT INFORMATION
  Report Type: Spontaneous
  Country: US (occurrence: US)
  Receive Date: 20200401
  Receipt Date: 20230221
  Transmission Date: 20230418
  Serious: No
  Sender: FDA-Public Use
  Company Number: US-PFIZER INC-2020131951

PATIENT
  Age: 64 Year
  Sex: Female

DRUGS (1)
  1. XELJANZ XR [Suspect]
     Active Substance: TOFACITINIB CITRATE
     Indication: Rheumatoid arthritis
     Dosage: 11 MG, DAILY
     Route: 048

REACTIONS (7)
  - Condition aggravated [Unknown]
  - Finger deformity [Unknown]
  - Therapeutic product effect decreased [Unknown]
  - Drug tolerance increased [Unknown]
  - Blood pressure increased [Unknown]
  - Sensitivity to weather change [Unknown]
  - Pain [Unknown]
